FAERS Safety Report 11143207 (Version 1)
Quarter: 2015Q2

REPORT INFORMATION
  Report Type: Spontaneous
  Country: US (occurrence: US)
  Receive Date: 20150526
  Receipt Date: 20150526
  Transmission Date: 20150821
  Serious: No
  Sender: FDA-Public Use
  Company Number: US-NOVEN PHARMACEUTICALS, INC.-US2015000013

PATIENT
  Age: 59 Year
  Sex: Female

DRUGS (3)
  1. MINIVELLE [Suspect]
     Active Substance: ESTRADIOL
     Indication: HOT FLUSH
     Dosage: 0.1 MG, UNK
     Route: 062
     Dates: start: 2012
  2. MINIVELLE [Suspect]
     Active Substance: ESTRADIOL
     Indication: NIGHT SWEATS
  3. PROGESTERONE. [Concomitant]
     Active Substance: PROGESTERONE
     Route: 048

REACTIONS (4)
  - Wrong technique in drug usage process [Unknown]
  - Drug effect increased [Unknown]
  - Nonspecific reaction [Unknown]
  - Adnexa uteri pain [Unknown]

NARRATIVE: CASE EVENT DATE: 201502
